FAERS Safety Report 19462237 (Version 1)
Quarter: 2021Q2

REPORT INFORMATION
  Report Type: Spontaneous
  Country: CA (occurrence: CA)
  Receive Date: 20210625
  Receipt Date: 20210625
  Transmission Date: 20210717
  Serious: Yes (Hospitalization, Other)
  Sender: FDA-Public Use
  Company Number: CA-SA-2021SA208531

PATIENT
  Age: 44 Year
  Sex: Male

DRUGS (17)
  1. DAUNORUBICIN [Suspect]
     Active Substance: DAUNORUBICIN
     Indication: ACUTE LYMPHOCYTIC LEUKAEMIA
  2. POTASSIUM [Suspect]
     Active Substance: POTASSIUM
  3. CYTARABINE. [Suspect]
     Active Substance: CYTARABINE
     Indication: ACUTE LYMPHOCYTIC LEUKAEMIA
  4. MYCAMINE [Suspect]
     Active Substance: MICAFUNGIN SODIUM
  5. CYCLOPHOSPHAMIDE. [Suspect]
     Active Substance: CYCLOPHOSPHAMIDE
     Indication: ACUTE LYMPHOCYTIC LEUKAEMIA
  6. ZINECARD [Suspect]
     Active Substance: DEXRAZOXANE HYDROCHLORIDE
  7. DEXAMETHASONE. [Suspect]
     Active Substance: DEXAMETHASONE
     Indication: ACUTE LYMPHOCYTIC LEUKAEMIA
  8. ETOPOSIDE. [Suspect]
     Active Substance: ETOPOSIDE
     Indication: ACUTE LYMPHOCYTIC LEUKAEMIA
  9. FASTURTEC [Suspect]
     Active Substance: RASBURICASE
  10. ALLOPURINOL. [Suspect]
     Active Substance: ALLOPURINOL
  11. ONDANSETRON [Suspect]
     Active Substance: ONDANSETRON
  12. COLECALCIFEROL [Suspect]
     Active Substance: CHOLECALCIFEROL
  13. FILGRASTIM [Suspect]
     Active Substance: FILGRASTIM
     Indication: ACUTE LYMPHOCYTIC LEUKAEMIA
  14. METOCLOPRAMIDE HYDROCHLORIDE. [Suspect]
     Active Substance: METOCLOPRAMIDE HYDROCHLORIDE
  15. FUROSEMIDE. [Suspect]
     Active Substance: FUROSEMIDE
  16. CEFAZOLIN [Suspect]
     Active Substance: CEFAZOLIN
  17. CYCLOSPORINE A [Suspect]
     Active Substance: CYCLOSPORINE
     Indication: ACUTE LYMPHOCYTIC LEUKAEMIA

REACTIONS (9)
  - Disseminated aspergillosis [Unknown]
  - Cellulitis [Unknown]
  - Lymphoid tissue hypoplasia [Unknown]
  - Lymphopenia [Unknown]
  - Cytomegalovirus viraemia [Unknown]
  - Thymus hypoplasia [Unknown]
  - Clostridium difficile colitis [Unknown]
  - Bacterial infection [Unknown]
  - Fungal infection [Unknown]
